FAERS Safety Report 10240711 (Version 1)
Quarter: 2014Q2

REPORT INFORMATION
  Report Type: Spontaneous
  Country: TR (occurrence: None)
  Receive Date: 20140613
  Receipt Date: 20140613
  Transmission Date: 20141212
  Serious: Yes (Hospitalization)
  Sender: FDA-Public Use
  Company Number: 2379347

PATIENT
  Age: 42 Year
  Sex: Male

DRUGS (4)
  1. FENTANYL CITRATE [Suspect]
     Indication: ANAESTHESIA
  2. ATRACURIUM [Suspect]
     Indication: ANAESTHESIA
  3. PROPOFOL FRESENIUS KABI [Suspect]
     Indication: ANAESTHESIA
  4. SEVOFLURANE [Suspect]
     Indication: ANAESTHESIA

REACTIONS (2)
  - Vocal cord paralysis [None]
  - Palatal oedema [None]
